FAERS Safety Report 15314742 (Version 2)
Quarter: 2018Q3

REPORT INFORMATION
  Report Type: Spontaneous
  Country: FR (occurrence: FR)
  Receive Date: 20180824
  Receipt Date: 20180925
  Transmission Date: 20181010
  Serious: Yes (Hospitalization, Other)
  Sender: FDA-Public Use
  Company Number: FR-AUROBINDO-AUR-APL-2018-042718

PATIENT
  Age: 67 Year
  Sex: Female
  Weight: 75 kg

DRUGS (11)
  1. ATORVASTATIN [Suspect]
     Active Substance: ATORVASTATIN
     Indication: PROPHYLAXIS
     Dosage: 10 MILLIGRAM, DAILY
     Route: 048
     Dates: end: 20180708
  2. DRIPTANE [Interacting]
     Active Substance: OXYBUTYNIN
     Indication: PRODUCT USED FOR UNKNOWN INDICATION
     Dosage: 3 DOSAGE FORM, DAILY
     Route: 048
     Dates: start: 20180626, end: 20180705
  3. ESCITALOPRAM [Suspect]
     Active Substance: ESCITALOPRAM OXALATE
     Indication: PRODUCT USED FOR UNKNOWN INDICATION
     Dosage: 10 MILLIGRAM, DAILY
     Route: 048
     Dates: start: 20180626, end: 20180708
  4. BISOCE [Suspect]
     Active Substance: BISOPROLOL
     Indication: ATRIAL FIBRILLATION
     Dosage: 2 DOSAGE FORM IN TOTAL
     Route: 048
     Dates: start: 20180707, end: 20180707
  5. AMIODARONE [Suspect]
     Active Substance: AMIODARONE
     Indication: ATRIAL FIBRILLATION
     Dosage: INCONNUE
     Route: 048
     Dates: start: 20180707, end: 20180708
  6. TRIMEBUTINE [Suspect]
     Active Substance: TRIMEBUTINE
     Indication: ABDOMINAL PAIN
     Dosage: 300 MILLIGRAM, DAILY
     Route: 048
     Dates: start: 20180626, end: 20180706
  7. PROGRAF [Suspect]
     Active Substance: TACROLIMUS\TACROLIMUS ANHYDROUS
     Indication: RENAL TRANSPLANT
     Dosage: 3 MILLIGRAM, DAILY
     Route: 048
     Dates: start: 20180627, end: 20180708
  8. FUNGIZONE [Suspect]
     Active Substance: AMPHOTERICIN B
     Indication: FUNGAL INFECTION
     Dosage: 3 DOSAGE FORM, DAILY
     Route: 002
     Dates: start: 20180625, end: 20180706
  9. LACTULOSE. [Suspect]
     Active Substance: LACTULOSE
     Indication: CONSTIPATION
     Dosage: 2 DOSAGE FORM, DAILY
     Route: 048
     Dates: start: 20180628, end: 20180708
  10. REPAGLINIDE. [Suspect]
     Active Substance: REPAGLINIDE
     Indication: DIABETES MELLITUS
     Dosage: 2 MILLIGRAM, DAILY
     Route: 048
     Dates: start: 20180705, end: 20180708
  11. LANSOPRAZOLE. [Suspect]
     Active Substance: LANSOPRAZOLE
     Indication: PROPHYLAXIS
     Dosage: 15 MILLIGRAM, DAILY
     Route: 048
     Dates: start: 20180707, end: 20180708

REACTIONS (1)
  - Pancreatitis acute [Recovering/Resolving]

NARRATIVE: CASE EVENT DATE: 20180708
